FAERS Safety Report 9188767 (Version 1)
Quarter: 2013Q1

REPORT INFORMATION
  Report Type: Report from Study
  Country: BR (occurrence: BR)
  Receive Date: 20130326
  Receipt Date: 20130326
  Transmission Date: 20140127
  Serious: Yes (Hospitalization)
  Sender: FDA-Public Use
  Company Number: BR-ABBOTT-13P-020-1065812-00

PATIENT
  Sex: Female
  Weight: 62 kg

DRUGS (10)
  1. HUMIRA [Suspect]
     Indication: RHEUMATOID ARTHRITIS
     Route: 058
     Dates: start: 201203
  2. MIRTAZAPINE [Suspect]
     Indication: BIPOLAR DISORDER
     Route: 048
     Dates: start: 201212
  3. DEFLAZACORT [Concomitant]
     Indication: ANTIINFLAMMATORY THERAPY
     Route: 048
     Dates: start: 201211
  4. DEFLAZACORT [Concomitant]
     Indication: ANALGESIC THERAPY
  5. DIVALPROEX SODIUM [Concomitant]
     Indication: BIPOLAR DISORDER
     Route: 048
     Dates: start: 2011
  6. CLONAZEPAM [Concomitant]
     Indication: SEDATION
     Route: 048
     Dates: start: 2003
  7. QUETIAPINE [Concomitant]
     Indication: DRUG LEVEL
     Route: 048
     Dates: start: 2011
  8. TIBOLONE [Concomitant]
     Indication: HORMONE REPLACEMENT THERAPY
     Route: 048
     Dates: start: 2008
  9. LEVOTHYROXINE SODIUM [Concomitant]
     Indication: THYROID DISORDER
     Route: 048
     Dates: start: 2009
  10. ATENOLOL/CHLORTHALIDONE [Concomitant]
     Indication: HYPERTENSION
     Dosage: FORM STRENGTH: 75/25 MG
     Route: 048
     Dates: start: 2006

REACTIONS (5)
  - Cardiovascular disorder [Recovered/Resolved]
  - Uterine haemorrhage [Recovered/Resolved]
  - Uterine leiomyoma [Recovered/Resolved]
  - Weight increased [Not Recovered/Not Resolved]
  - Syncope [Unknown]
